FAERS Safety Report 24275789 (Version 1)
Quarter: 2024Q3

REPORT INFORMATION
  Report Type: Spontaneous
  Country: US (occurrence: US)
  Receive Date: 20240903
  Receipt Date: 20240903
  Transmission Date: 20241017
  Serious: No
  Sender: AMGEN
  Company Number: US-AMGEN-USASP2024173759

PATIENT
  Age: 71 Year
  Sex: Female

DRUGS (2)
  1. BEVACIZUMAB [Suspect]
     Active Substance: BEVACIZUMAB
     Indication: Corneal neovascularisation
     Dosage: UNK (SUBCONJUNCTIVAL)
     Route: 065
  2. DEXAMETHASONE [Concomitant]
     Active Substance: DEXAMETHASONE
     Indication: Corneal neovascularisation
     Dosage: UNK
     Route: 065

REACTIONS (1)
  - Off label use [Unknown]
